FAERS Safety Report 24070037 (Version 2)
Quarter: 2024Q3

REPORT INFORMATION
  Report Type: Spontaneous
  Country: PT (occurrence: PT)
  Receive Date: 20240710
  Receipt Date: 20240710
  Transmission Date: 20241016
  Serious: No
  Sender: ROCHE
  Company Number: None

PATIENT
  Sex: Female
  Weight: 48.0 kg

DRUGS (1)
  1. ALECENSA [Suspect]
     Active Substance: ALECTINIB HYDROCHLORIDE
     Indication: Non-small cell lung cancer
     Dosage: 600MG BID
     Route: 065
     Dates: start: 20200109, end: 20211015

REACTIONS (1)
  - Sideroblastic anaemia [Recovering/Resolving]

NARRATIVE: CASE EVENT DATE: 20200910
